APPROVED DRUG PRODUCT: CLOVIQUE
Active Ingredient: TRIENTINE HYDROCHLORIDE
Strength: 250MG
Dosage Form/Route: CAPSULE;ORAL
Application: A209731 | Product #001
Applicant: CHARTWELL RX SCIENCES LLC
Approved: Oct 21, 2019 | RLD: No | RS: No | Type: DISCN